FAERS Safety Report 7332265-0 (Version None)
Quarter: 2011Q1

REPORT INFORMATION
  Report Type: 
  Country: None (occurrence: None)
  Receive Date: 20110304
  Receipt Date: 20110225
  Transmission Date: 20110831
  Serious: Yes (Other)
  Sender: FDA-Public Use
  Company Number: US-JNJFOC-20110100270

PATIENT
  Sex: Male
  Weight: 25.4 kg

DRUGS (2)
  1. CHILDREN'S MOTRIN [Suspect]
     Indication: PRODUCT USED FOR UNKNOWN INDICATION
     Route: 048
  2. CHILDREN'S MOTRIN [Suspect]
     Route: 048

REACTIONS (4)
  - PRODUCT QUALITY ISSUE [None]
  - ASTHMA [None]
  - RASH [None]
  - LETHARGY [None]
